FAERS Safety Report 6667774-0 (Version None)
Quarter: 2010Q2

REPORT INFORMATION
  Report Type: 
  Country: None (occurrence: None)
  Receive Date: 20100405
  Receipt Date: 20100329
  Transmission Date: 20101027
  Serious: Yes (Other)
  Sender: FDA-Public Use
  Company Number: US-JNJFOC-20100307057

PATIENT
  Sex: Male

DRUGS (2)
  1. TYLENOL [Suspect]
     Indication: ARTHRALGIA
  2. TYLENOL [Suspect]
     Indication: ARTHRITIS

REACTIONS (1)
  - HEPATITIS C [None]
